FAERS Safety Report 13305680 (Version 3)
Quarter: 2017Q2

REPORT INFORMATION
  Report Type: Spontaneous
  Country: SI (occurrence: SI)
  Receive Date: 20170308
  Receipt Date: 20170404
  Transmission Date: 20170830
  Serious: Yes (Other)
  Sender: FDA-Public Use
  Company Number: SI-TOLMAR, INC.-2017SI001867

PATIENT
  Age: 80 Year
  Sex: Male

DRUGS (5)
  1. ASPIRIN                            /00002701/ [Concomitant]
     Active Substance: ASPIRIN
  2. OMNIC OCAS [Concomitant]
     Active Substance: TAMSULOSIN HYDROCHLORIDE
  3. ELIGARD [Suspect]
     Active Substance: LEUPROLIDE ACETATE
     Indication: PROSTATE CANCER
     Dosage: 22.5 MG, Q3MONTHS
     Route: 065
     Dates: start: 20170202
  4. CASODEX [Concomitant]
     Active Substance: BICALUTAMIDE
  5. CONCOR [Concomitant]
     Active Substance: BISOPROLOL FUMARATE

REACTIONS (14)
  - Decreased appetite [Recovering/Resolving]
  - Depression [Recovering/Resolving]
  - Cough [Recovered/Resolved]
  - Diarrhoea [Recovered/Resolved]
  - Hot flush [Not Recovered/Not Resolved]
  - Cellulitis [Recovering/Resolving]
  - Oedema peripheral [Recovering/Resolving]
  - Musculoskeletal pain [Not Recovered/Not Resolved]
  - Asthenia [Recovering/Resolving]
  - Apathy [Recovering/Resolving]
  - Neck pain [Not Recovered/Not Resolved]
  - Anosmia [Recovering/Resolving]
  - Arthralgia [Not Recovered/Not Resolved]
  - Ageusia [Recovering/Resolving]

NARRATIVE: CASE EVENT DATE: 20170203
